FAERS Safety Report 5812370-8 (Version None)
Quarter: 2008Q3

REPORT INFORMATION
  Report Type: 
  Country: None (occurrence: None)
  Receive Date: 20080716
  Receipt Date: 20080704
  Transmission Date: 20090109
  Serious: Yes (Hospitalization, Other)
  Sender: FDA-Public Use
  Company Number: GB-PFIZER INC-2008056486

PATIENT
  Age: 67 Year
  Sex: Male

DRUGS (1)
  1. REVATIO [Suspect]
     Indication: CARDIOVASCULAR DISORDER
     Route: 048

REACTIONS (2)
  - CELLULITIS [None]
  - PNEUMONIA [None]
